FAERS Safety Report 8621085 (Version 2)
Quarter: 2020Q3

REPORT INFORMATION
  Report Type: Spontaneous
  Country: JP (occurrence: None)
  Receive Date: 20120604
  Receipt Date: 20120613
  Transmission Date: 20201104
  Serious: Yes (Hospitalization)
  Sender: FDA-Public Use
  Company Number: 2012SP029461

PATIENT
  Age: 70 Year
  Sex: Female
  Weight: 42.1 kg

DRUGS (17)
  1. ALLEGRA [Concomitant]
     Active Substance: FEXOFENADINE HYDROCHLORIDE
  2. FORTEO [Concomitant]
     Active Substance: TERIPARATIDE
  3. GASTER [Concomitant]
     Active Substance: FAMOTIDINE
  4. SODIUM HYALURONATE [Concomitant]
     Active Substance: HYALURONATE SODIUM
  5. PRIMPERAN [Concomitant]
     Active Substance: METOCLOPRAMIDE HYDROCHLORIDE
  6. KETOPROFEN. [Concomitant]
     Active Substance: KETOPROFEN
  7. TALION (BEPOTASTINE BESYLATE) [Concomitant]
     Active Substance: BEPOTASTINE BESYLATE
  8. NEGMIN [Concomitant]
  9. RINDERON V [Concomitant]
  10. GASMOTIN [Concomitant]
  11. PEGINTERFERON ALFA?2B [Suspect]
     Active Substance: PEGINTERFERON ALFA-2B
     Indication: HEPATITIS C
     Dosage: 80 MCG/KG;QW
     Dates: start: 20111207, end: 20120515
  12. VANIPREVIR. [Suspect]
     Active Substance: VANIPREVIR
     Indication: HEPATITIS C
     Dosage: 300 MG;BID
     Dates: start: 20111207, end: 20120521
  13. RIBAVIRIN. [Suspect]
     Active Substance: RIBAVIRIN
     Indication: HEPATITIS C
     Dates: start: 20111207, end: 20120521
  14. SELBEX [Concomitant]
  15. CELEBREX [Concomitant]
     Active Substance: CELECOXIB
  16. HIRUDOID [Concomitant]
  17. LOXOPROFEN [Concomitant]

REACTIONS (5)
  - Chondrocalcinosis pyrophosphate [None]
  - Arthritis [None]
  - Lymphocytic infiltration [None]
  - Musculoskeletal pain [None]
  - Arthralgia [None]

NARRATIVE: CASE EVENT DATE: 20120524
